FAERS Safety Report 7952769-7 (Version None)
Quarter: 2011Q4

REPORT INFORMATION
  Report Type: 
  Country: None (occurrence: None)
  Receive Date: 20111201
  Receipt Date: 20111122
  Transmission Date: 20120403
  Serious: Yes (Other)
  Sender: FDA-Public Use
  Company Number: US-BAYER-2011-013533

PATIENT
  Sex: Female
  Weight: 66 kg

DRUGS (6)
  1. YASMIN [Suspect]
     Dosage: UNK
     Dates: start: 20051010, end: 20070901
  2. YASMIN [Suspect]
     Indication: CONTRACEPTION
     Dosage: UNK
     Dates: start: 20020819, end: 20040901
  3. YAZ [Suspect]
     Indication: CONTRACEPTION
     Dosage: UNK
     Dates: start: 20070901, end: 20080128
  4. PROVENTIL [Concomitant]
     Dosage: UNK
     Route: 055
     Dates: start: 20090126
  5. NYQUIL [Concomitant]
     Indication: INFLUENZA
  6. EXCEDRIN [ACETYLSALICYLIC ACID,CAFFEINE,PARACETAMOL,SALICYLAMIDE] [Concomitant]
     Route: 048

REACTIONS (7)
  - ANXIETY [None]
  - PULMONARY EMBOLISM [None]
  - INJURY [None]
  - PSYCHOLOGICAL TRAUMA [None]
  - EMOTIONAL DISTRESS [None]
  - FEAR [None]
  - PAIN [None]
